FAERS Safety Report 4283285-4 (Version None)
Quarter: 2004Q1

REPORT INFORMATION
  Report Type: 
  Country: None (occurrence: None)
  Receive Date: 20040129
  Receipt Date: 20040120
  Transmission Date: 20041129
  Serious: Yes (Other)
  Sender: FDA-Public Use
  Company Number: 200401149

PATIENT
  Age: 9 Year
  Sex: Female

DRUGS (1)
  1. VERMOX [Suspect]
     Indication: ASCARIASIS
     Dosage: 100 MG ONCE PO
     Route: 048
     Dates: start: 20031001, end: 20031001

REACTIONS (3)
  - ABDOMINAL PAIN UPPER [None]
  - NAUSEA [None]
  - VOMITING [None]
